FAERS Safety Report 9711816 (Version 1)
Quarter: 2013Q4

REPORT INFORMATION
  Report Type: Spontaneous
  Country: US (occurrence: US)
  Receive Date: 20131126
  Receipt Date: 20131126
  Transmission Date: 20140711
  Serious: No
  Sender: FDA-Public Use
  Company Number: US-BRISTOL-MYERS SQUIBB COMPANY-19114826

PATIENT
  Age: 71 Year
  Sex: Male

DRUGS (3)
  1. BYDUREON [Suspect]
     Indication: TYPE 2 DIABETES MELLITUS
     Dosage: DOSE: 14-JUL-2013
  2. ACTOS [Concomitant]
  3. GLUCOVANCE [Concomitant]
     Dosage: 1DF:2.5/500 UNIT NOS,2PILLS

REACTIONS (2)
  - Dizziness [Unknown]
  - Injection site nodule [Recovering/Resolving]
